APPROVED DRUG PRODUCT: CICLOPIROX
Active Ingredient: CICLOPIROX
Strength: 8%
Dosage Form/Route: SOLUTION;TOPICAL
Application: A077623 | Product #001 | TE Code: AT
Applicant: PADAGIS US LLC
Approved: Sep 18, 2007 | RLD: No | RS: Yes | Type: RX